FAERS Safety Report 5580503-7 (Version None)
Quarter: 2007Q4

REPORT INFORMATION
  Report Type: 
  Country: None (occurrence: None)
  Receive Date: 20071231
  Receipt Date: 20071231
  Transmission Date: 20080405
  Serious: Yes (Hospitalization)
  Sender: FDA-Public Use
  Company Number: None

PATIENT
  Sex: Male
  Weight: 51.1 kg

DRUGS (4)
  1. FLUOROURACIL [Suspect]
     Dosage: 9296 MG
     Dates: end: 20071128
  2. BEVACIZUMAB (RHUMAB VEGF) [Suspect]
     Dosage: 566 MG
     Dates: end: 20071128
  3. LEUCOVORIN CALCIUM [Suspect]
     Dosage: 1328 MG
     Dates: end: 20071128
  4. ELOXATIN [Suspect]
     Dosage: 282 MG
     Dates: end: 20071128

REACTIONS (3)
  - BILE DUCT OBSTRUCTION [None]
  - CONDITION AGGRAVATED [None]
  - SCAN ABDOMEN ABNORMAL [None]
